FAERS Safety Report 17412708 (Version 7)
Quarter: 2020Q2

REPORT INFORMATION
  Report Type: Report from Study
  Country: US (occurrence: US)
  Receive Date: 20200213
  Receipt Date: 20200602
  Transmission Date: 20200713
  Serious: No
  Sender: FDA-Public Use
  Company Number: NVSC2020US036755

PATIENT
  Age: 46 Year
  Sex: Female
  Weight: 65.77 kg

DRUGS (2)
  1. GILENYA [Suspect]
     Active Substance: FINGOLIMOD HYDROCHLORIDE
     Indication: MULTIPLE SCLEROSIS
  2. GILENYA [Suspect]
     Active Substance: FINGOLIMOD HYDROCHLORIDE
     Indication: RELAPSING-REMITTING MULTIPLE SCLEROSIS
     Dosage: 0.5 MG, QD
     Route: 048
     Dates: start: 20200205, end: 20200226

REACTIONS (17)
  - Insomnia [Unknown]
  - Pain in extremity [Unknown]
  - Panic attack [Unknown]
  - Nervousness [Unknown]
  - Heart rate irregular [Unknown]
  - Central nervous system lesion [Unknown]
  - Fatigue [Unknown]
  - Psychomotor hyperactivity [Unknown]
  - Dysphagia [Unknown]
  - Pain [Unknown]
  - Heart rate decreased [Unknown]
  - Sleep disorder [Unknown]
  - Abnormal behaviour [Unknown]
  - Back pain [Unknown]
  - Sinus disorder [Unknown]
  - Malaise [Unknown]
  - Heart rate increased [Recovered/Resolved]

NARRATIVE: CASE EVENT DATE: 20200205
